FAERS Safety Report 13618820 (Version 1)
Quarter: 2017Q2

REPORT INFORMATION
  Report Type: Spontaneous
  Country: US (occurrence: US)
  Receive Date: 20170606
  Receipt Date: 20170606
  Transmission Date: 20170830
  Serious: No
  Sender: FDA-Public Use
  Company Number: US-APOTEX-2017AP010300

PATIENT
  Sex: Female

DRUGS (2)
  1. CLARISPRAY NASAL ALLERGY [Suspect]
     Active Substance: FLUTICASONE PROPIONATE
     Indication: RHINORRHOEA
     Dosage: UNK
     Route: 065
     Dates: start: 20170326, end: 20170327
  2. ASPIRIN                            /00002701/ [Concomitant]
     Active Substance: ASPIRIN
     Indication: HEADACHE
     Route: 065

REACTIONS (4)
  - Headache [Unknown]
  - Condition aggravated [Unknown]
  - Product taste abnormal [Unknown]
  - Drug ineffective [Unknown]
